FAERS Safety Report 9780182 (Version 2)
Quarter: 2016Q2

REPORT INFORMATION
  Report Type: Report from Study
  Country: NL (occurrence: NL)
  Receive Date: 20131223
  Receipt Date: 20160517
  Transmission Date: 20160815
  Serious: Yes (Hospitalization)
  Sender: FDA-Public Use
  Company Number: PHHY2013NL150009

PATIENT
  Age: 88 Year
  Sex: Male

DRUGS (3)
  1. ZOMETA [Suspect]
     Active Substance: ZOLEDRONIC ACID
     Dosage: 4 MG/ 100 ML, ONCE EVERY 4 WEEKS
     Route: 042
     Dates: start: 20131121
  2. ZOMETA [Suspect]
     Active Substance: ZOLEDRONIC ACID
     Dosage: 4 MG/ 100 ML, ONCE EVERY 4 WEEKS
     Route: 042
     Dates: start: 20130408
  3. ZOMETA [Suspect]
     Active Substance: ZOLEDRONIC ACID
     Indication: PROSTATE CANCER METASTATIC
     Dosage: 4 MG/ 100 ML, ONCE EVERY 4 WEEKS
     Route: 042

REACTIONS (4)
  - Dehydration [Recovering/Resolving]
  - Vomiting [Unknown]
  - Pneumonia [Recovering/Resolving]
  - Diarrhoea [Unknown]

NARRATIVE: CASE EVENT DATE: 20131216
